FAERS Safety Report 15563392 (Version 2)
Quarter: 2018Q4

REPORT INFORMATION
  Report Type: Report from Study
  Country: US (occurrence: US)
  Receive Date: 20181029
  Receipt Date: 20181106
  Transmission Date: 20190205
  Serious: Yes (Hospitalization)
  Sender: FDA-Public Use
  Company Number: US-ACTELION-A-NJ2018-180881

PATIENT
  Age: 3 Year
  Sex: Male
  Weight: 9.52 kg

DRUGS (1)
  1. TRACLEER [Suspect]
     Active Substance: BOSENTAN
     Indication: PULMONARY ARTERIAL HYPERTENSION
     Dosage: 16 MG, QD
     Route: 048

REACTIONS (2)
  - Joint dislocation reduction [Unknown]
  - Gastrostomy [Unknown]

NARRATIVE: CASE EVENT DATE: 20181015
